FAERS Safety Report 6501156-7 (Version None)
Quarter: 2009Q4

REPORT INFORMATION
  Report Type: 
  Country: None (occurrence: None)
  Receive Date: 20091216
  Receipt Date: 20090821
  Transmission Date: 20100525
  Serious: No
  Sender: FDA-Public Use
  Company Number: A0803466A

PATIENT
  Age: 70 Year
  Sex: Male

DRUGS (2)
  1. COMMIT [Suspect]
     Route: 048
     Dates: start: 20090819
  2. UNKNOWN MEDICATION [Concomitant]

REACTIONS (3)
  - BLOOD GLUCOSE INCREASED [None]
  - DRUG ADMINISTRATION ERROR [None]
  - PRODUCT QUALITY ISSUE [None]
